FAERS Safety Report 7576985-1 (Version None)
Quarter: 2011Q2

REPORT INFORMATION
  Report Type: 
  Country: None (occurrence: None)
  Receive Date: 20110628
  Receipt Date: 20110110
  Transmission Date: 20111010
  Serious: Yes (Other)
  Sender: FDA-Public Use
  Company Number: US-BAYER-201033506NA

PATIENT
  Age: 34 Year
  Sex: Female
  Weight: 90.703 kg

DRUGS (5)
  1. YAZ [Suspect]
     Indication: CONTRACEPTION
     Dosage: UNK
     Dates: start: 20080213, end: 20081001
  2. PROAIR HFA [Concomitant]
  3. CITALOPRAM HYDROBROMIDE [Concomitant]
  4. ALBUTEROL SULFATE AUTOHALER [Concomitant]
     Indication: DYSPNOEA
     Dosage: UNK
     Dates: start: 20071101, end: 20080501
  5. PRENATAL 1+1 [VIT C,CA+,D3,CU+,B12,B9,FE+,B3,B6,RETINOL,B2,B1,VIT E,ZN [Concomitant]
     Dosage: UNK UNK, QD
     Route: 048

REACTIONS (8)
  - CHOLELITHIASIS [None]
  - DYSPEPSIA [None]
  - CHOLECYSTECTOMY [None]
  - PAIN [None]
  - CHOLESTEROSIS [None]
  - PROCEDURAL PAIN [None]
  - CHOLECYSTITIS CHRONIC [None]
  - ABDOMINAL PAIN UPPER [None]
